FAERS Safety Report 13674816 (Version 1)
Quarter: 2017Q2

REPORT INFORMATION
  Report Type: Spontaneous
  Country: US (occurrence: US)
  Receive Date: 20170621
  Receipt Date: 20170621
  Transmission Date: 20170830
  Serious: No
  Sender: FDA-Public Use
  Company Number: US-PFIZER INC-2017269048

PATIENT
  Age: 8 Year
  Sex: Female
  Weight: 40.82 kg

DRUGS (2)
  1. CHILDRENS ADVIL [Suspect]
     Active Substance: IBUPROFEN
     Indication: EAR INFECTION
     Dosage: 2 TEASPOONS OF 100MG/5ML SUSPENSION
     Dates: end: 20170616
  2. CHILDRENS ADVIL [Suspect]
     Active Substance: IBUPROFEN
     Indication: HEADACHE

REACTIONS (6)
  - Swelling face [Not Recovered/Not Resolved]
  - Lip swelling [Not Recovered/Not Resolved]
  - Urticaria [Recovering/Resolving]
  - Hypersensitivity [Unknown]
  - Rash macular [Recovering/Resolving]
  - Erythema [Unknown]

NARRATIVE: CASE EVENT DATE: 20170616
